FAERS Safety Report 10056339 (Version 1)
Quarter: 2014Q2

REPORT INFORMATION
  Report Type: Spontaneous
  Country: IT (occurrence: None)
  Receive Date: 20140401
  Receipt Date: 20140401
  Transmission Date: 20141212
  Serious: Yes (Other)
  Sender: FDA-Public Use
  Company Number: 2014DEPIT00058

PATIENT
  Age: 49 Year
  Sex: Female

DRUGS (2)
  1. DEPOCYT [Suspect]
     Indication: ACUTE LYMPHOCYTIC LEUKAEMIA
     Route: 037
  2. VINCRISTINE (VINCRISTINE SULFATE) [Suspect]
     Indication: ACUTE LYMPHOCYTIC LEUKAEMIA

REACTIONS (4)
  - Peripheral motor neuropathy [None]
  - Syncope [None]
  - Convulsion [None]
  - Headache [None]
